FAERS Safety Report 9971759 (Version 1)
Quarter: 2014Q1

REPORT INFORMATION
  Report Type: Report from Study
  Country: US (occurrence: US)
  Receive Date: 20140306
  Receipt Date: 20140306
  Transmission Date: 20141002
  Serious: No
  Sender: FDA-Public Use
  Company Number: US-ABBVIE-13P-163-1148324-00

PATIENT
  Age: 51 Year
  Sex: Female

DRUGS (10)
  1. HUMIRA [Suspect]
     Indication: RHEUMATOID ARTHRITIS
  2. VICODIN [Concomitant]
     Indication: ARTHRALGIA
     Dosage: 5/500 MG
  3. VICODIN [Concomitant]
     Indication: OSTEOARTHRITIS
  4. PLAQUENIL [Concomitant]
     Indication: SJOGREN^S SYNDROME
  5. SALAGEN [Concomitant]
     Indication: SJOGREN^S SYNDROME
  6. METHOTREXATE [Concomitant]
     Indication: RHEUMATOID ARTHRITIS
  7. BYSTOLIC [Concomitant]
     Indication: HYPERTENSION
  8. MOBIC [Concomitant]
     Indication: ARTHRITIS
  9. UNKNOWN STOMACH MEDICATION [Concomitant]
     Indication: GASTROOESOPHAGEAL REFLUX DISEASE
  10. PROVIGIL [Concomitant]
     Indication: SLEEP APNOEA SYNDROME
     Dosage: 1/2 PILL DAILY

REACTIONS (1)
  - Rash [Not Recovered/Not Resolved]
